FAERS Safety Report 10252829 (Version 1)
Quarter: 2014Q2

REPORT INFORMATION
  Report Type: Spontaneous
  Country: US (occurrence: US)
  Receive Date: 20140623
  Receipt Date: 20140623
  Transmission Date: 20141212
  Serious: No
  Sender: FDA-Public Use
  Company Number: US-PFIZER INC-2014171869

PATIENT
  Age: 56 Year
  Sex: Male
  Weight: 83.9 kg

DRUGS (4)
  1. XANAX [Suspect]
     Indication: ANXIETY
     Dosage: 2 MG, AS NEEDED
     Dates: start: 201304
  2. XANAX [Suspect]
     Indication: PANIC DISORDER
  3. WELLBUTRIN [Concomitant]
     Indication: DEPRESSION
     Dosage: 300 MG, DAILY
  4. REVATIO [Concomitant]
     Indication: PULMONARY HYPERTENSION
     Dosage: 20 MG, 2X/DAY
     Dates: start: 201405

REACTIONS (1)
  - Amnesia [Unknown]
